FAERS Safety Report 6209798-3 (Version None)
Quarter: 2009Q2

REPORT INFORMATION
  Report Type: 
  Country: None (occurrence: None)
  Receive Date: 20090601
  Receipt Date: 20090521
  Transmission Date: 20091009
  Serious: Yes (Hospitalization)
  Sender: FDA-Public Use
  Company Number: PHEH2009US05193

PATIENT
  Sex: Female

DRUGS (1)
  1. EXJADE [Suspect]
     Indication: SICKLE CELL ANAEMIA
     Dosage: 500 MG, BID
     Route: 048
     Dates: start: 20080625

REACTIONS (4)
  - DIZZINESS [None]
  - NAUSEA [None]
  - PNEUMONIA [None]
  - SICKLE CELL ANAEMIA WITH CRISIS [None]
